FAERS Safety Report 25272291 (Version 2)
Quarter: 2025Q2

REPORT INFORMATION
  Report Type: Spontaneous
  Country: US (occurrence: US)
  Receive Date: 20250506
  Receipt Date: 20250514
  Transmission Date: 20250716
  Serious: Yes (Hospitalization, Other)
  Sender: SYNDAX
  Company Number: US-SYNDAX PHARMACEUTICALS, INC.-2025US000324

PATIENT
  Sex: Female
  Weight: 60.789 kg

DRUGS (3)
  1. REVUFORJ [Suspect]
     Active Substance: REVUMENIB CITRATE
     Indication: Acute myeloid leukaemia
     Dosage: 270 MILLIGRAM, BID
     Route: 048
     Dates: start: 20250328
  2. VENCLEXTA [Concomitant]
     Active Substance: VENETOCLAX
     Indication: Acute myeloid leukaemia
     Route: 048
     Dates: start: 20250428
  3. VENCLEXTA [Concomitant]
     Active Substance: VENETOCLAX
     Dosage: 100 MILLIGRAM, DAILY
     Route: 048
     Dates: start: 20250503

REACTIONS (11)
  - Pneumonia [Unknown]
  - Neutropenia [Unknown]
  - Pancytopenia [Recovering/Resolving]
  - Febrile neutropenia [Unknown]
  - Cough [Recovering/Resolving]
  - Infection [Unknown]
  - Fatigue [Recovering/Resolving]
  - Peripheral swelling [Unknown]
  - Nausea [Unknown]
  - Panic attack [Unknown]
  - Vomiting [Unknown]
